FAERS Safety Report 9732994 (Version 1)
Quarter: 2013Q4

REPORT INFORMATION
  Report Type: Spontaneous
  Country: US (occurrence: US)
  Receive Date: 20131204
  Receipt Date: 20131204
  Transmission Date: 20140711
  Serious: No
  Sender: FDA-Public Use
  Company Number: US-GILEAD-2009-0020909

PATIENT
  Sex: Male
  Weight: 86.18 kg

DRUGS (9)
  1. LETAIRIS [Suspect]
     Indication: PULMONARY ARTERIAL HYPERTENSION
     Route: 048
     Dates: start: 20080723
  2. FUROSEMIDE [Concomitant]
  3. ATENOLOL [Concomitant]
  4. BENICAR [Concomitant]
  5. ZOCOR [Concomitant]
  6. ASPIRIN [Concomitant]
  7. NOVOLOG INSULIN [Concomitant]
  8. PROCRIT [Concomitant]
  9. FERROUS SULFATE [Concomitant]

REACTIONS (2)
  - Nasal congestion [Recovered/Resolved]
  - Haemoglobin decreased [Unknown]
